FAERS Safety Report 9244465 (Version 1)
Quarter: 2013Q2

REPORT INFORMATION
  Report Type: Report from Study
  Country: BR (occurrence: BR)
  Receive Date: 20130422
  Receipt Date: 20130422
  Transmission Date: 20140414
  Serious: Yes (Other)
  Sender: FDA-Public Use
  Company Number: PHHY2013BR038209

PATIENT
  Sex: Female
  Weight: 60 kg

DRUGS (4)
  1. ACLASTA [Suspect]
     Indication: OSTEOPOROSIS
     Dosage: 5 MG, UNK
     Route: 042
     Dates: start: 2010
  2. OSCAL D [Concomitant]
     Indication: CALCIUM DEFICIENCY
     Dosage: 1 DF, UNK
     Route: 048
  3. SELOZOK [Concomitant]
     Indication: HYPERTENSION
     Dosage: 1 DF, UNK
     Route: 048
  4. ENALAPRIL [Concomitant]
     Indication: HYPERTENSION
     Dosage: 1 DF, UNK
     Route: 048

REACTIONS (1)
  - Joint injury [Recovering/Resolving]
